FAERS Safety Report 6219858-9 (Version None)
Quarter: 2009Q2

REPORT INFORMATION
  Report Type: 
  Country: None (occurrence: None)
  Receive Date: 20090609
  Receipt Date: 20090410
  Transmission Date: 20091009
  Serious: No
  Sender: FDA-Public Use
  Company Number: US-BAYER-200918260NA

PATIENT
  Age: 46 Year
  Sex: Female
  Weight: 73 kg

DRUGS (7)
  1. ULTRAVIST 370 [Suspect]
     Indication: COMPUTERISED TOMOGRAM
     Dosage: TOTAL DAILY DOSE: 100 ML  UNIT DOSE: 100 ML
     Route: 042
     Dates: start: 20090410, end: 20090410
  2. ULTRAVIST 370 [Suspect]
     Route: 048
     Dates: start: 20090410, end: 20090410
  3. LIPITOR [Concomitant]
  4. LOTREL [Concomitant]
  5. HYDROCHLOROTHIAZIDE [Concomitant]
  6. XALATAN [Concomitant]
  7. TIMILOL [Concomitant]

REACTIONS (2)
  - PRURITUS [None]
  - URTICARIA [None]
